FAERS Safety Report 4463650-2 (Version None)
Quarter: 2004Q3

REPORT INFORMATION
  Report Type: 
  Country: None (occurrence: None)
  Receive Date: 20040929
  Receipt Date: 20040910
  Transmission Date: 20050211
  Serious: Yes (Death, Other)
  Sender: FDA-Public Use
  Company Number: GBS040915571

PATIENT
  Age: 61 Year
  Sex: Male

DRUGS (9)
  1. DOBUTAMINE (DOBUTAMINE HYDROCHLORIDE) [Suspect]
     Indication: CARDIAC OUTPUT DECREASED
     Dates: start: 20020705, end: 20020711
  2. FRUSEMIDE [Concomitant]
  3. LISINOPRIL [Concomitant]
  4. DUGOXIN (DIGOXIN) [Concomitant]
  5. SPIRONOLACTONE [Concomitant]
  6. ASPIRIN [Concomitant]
  7. ATORVASTATIN CALCIUM [Concomitant]
  8. ORAMORPH SR [Concomitant]
  9. LACTULOSE [Concomitant]

REACTIONS (11)
  - BLOOD ALBUMIN DECREASED [None]
  - BLOOD CALCIUM DECREASED [None]
  - BLOOD CREATININE INCREASED [None]
  - BLOOD PHOSPHORUS INCREASED [None]
  - BLOOD POTASSIUM INCREASED [None]
  - CARDIAC FAILURE [None]
  - GRAND MAL CONVULSION [None]
  - PCO2 ABNORMAL [None]
  - PO2 ABNORMAL [None]
  - PROTEIN TOTAL DECREASED [None]
  - SUDDEN DEATH [None]
